FAERS Safety Report 5847832-0 (Version None)
Quarter: 2008Q3

REPORT INFORMATION
  Report Type: 
  Country: None (occurrence: None)
  Receive Date: 20080814
  Receipt Date: 20080814
  Transmission Date: 20090109
  Serious: Yes (Other)
  Sender: FDA-Public Use
  Company Number: None

PATIENT
  Age: 27 Year
  Sex: Female
  Weight: 56.246 kg

DRUGS (1)
  1. NUVARING [Suspect]
     Indication: CONTRACEPTION
     Dosage: 1 RING  3 WEEKS ON A MONTH
     Dates: start: 20030101, end: 20080601

REACTIONS (3)
  - HEADACHE [None]
  - MIGRAINE [None]
  - PELVIC INFLAMMATORY DISEASE [None]
